FAERS Safety Report 7303989-6 (Version None)
Quarter: 2011Q1

REPORT INFORMATION
  Report Type: 
  Country: None (occurrence: None)
  Receive Date: 20110221
  Receipt Date: 20110211
  Transmission Date: 20110831
  Serious: Yes (Hospitalization)
  Sender: FDA-Public Use
  Company Number: BR-ASTRAZENECA-2011SE08534

PATIENT
  Age: 52 Year
  Sex: Male

DRUGS (3)
  1. METOPROLOL TARTRATE [Suspect]
     Indication: ARRHYTHMIA
     Route: 048
     Dates: start: 20100201, end: 20100801
  2. METOPROLOL TARTRATE [Suspect]
     Route: 048
     Dates: start: 20100801, end: 20110201
  3. METOPROLOL TARTRATE [Suspect]
     Route: 048
     Dates: start: 20110201

REACTIONS (4)
  - CARDIAC FIBRILLATION [None]
  - ARRHYTHMIA [None]
  - OFF LABEL USE [None]
  - TACHYCARDIA [None]
